FAERS Safety Report 11277869 (Version 2)
Quarter: 2015Q3

REPORT INFORMATION
  Report Type: Report from Study
  Country: US (occurrence: US)
  Receive Date: 20150716
  Receipt Date: 20150730
  Transmission Date: 20151125
  Serious: Yes (Death, Other)
  Sender: FDA-Public Use
  Company Number: US-GILEAD-2015-0163155

PATIENT
  Age: 75 Year
  Sex: Female

DRUGS (3)
  1. ISOSORBIDE MONONITRATE. [Concomitant]
     Active Substance: ISOSORBIDE MONONITRATE
     Dosage: 60 MG, UNK
  2. ASA [Concomitant]
     Active Substance: ASPIRIN
     Dosage: 325 MG, UNK
  3. RANOLAZINE [Suspect]
     Active Substance: RANOLAZINE
     Indication: PRODUCT USED FOR UNKNOWN INDICATION
     Route: 065

REACTIONS (4)
  - Acute myocardial infarction [Fatal]
  - Cardiac failure congestive [Fatal]
  - Nephropathy [Fatal]
  - Coronary artery disease [Fatal]
